FAERS Safety Report 6697535-8 (Version None)
Quarter: 2010Q2

REPORT INFORMATION
  Report Type: 
  Country: None (occurrence: None)
  Receive Date: 20100421
  Receipt Date: 20090406
  Transmission Date: 20101027
  Serious: Yes (Death)
  Sender: FDA-Public Use
  Company Number: 20090111

PATIENT
  Sex: Male
  Weight: 102.5129 kg

DRUGS (1)
  1. DEXFERRUM [Suspect]
     Indication: ANAEMIA
     Dosage: 25 MG IN 50 ML NS; INTRAVENOUS
     Route: 042
     Dates: start: 20070207, end: 20090207

REACTIONS (2)
  - DYSPNOEA [None]
  - RESPIRATORY ARREST [None]
